FAERS Safety Report 26155386 (Version 1)
Quarter: 2025Q4

REPORT INFORMATION
  Report Type: Report from Study
  Country: ID (occurrence: ID)
  Receive Date: 20251215
  Receipt Date: 20251215
  Transmission Date: 20260118
  Serious: Yes (Death)
  Sender: DAIICHI
  Company Number: ID-AstraZeneca-CH-01012073A

PATIENT
  Sex: Female

DRUGS (1)
  1. ENHERTU [Suspect]
     Active Substance: FAM-TRASTUZUMAB DERUXTECAN-NXKI
     Indication: Product used for unknown indication
     Dosage: 300 MG, ONCE EVERY 3 WK
     Route: 065
     Dates: start: 20250826

REACTIONS (1)
  - Death [Fatal]
